FAERS Safety Report 9192624 (Version 1)
Quarter: 2013Q1

REPORT INFORMATION
  Report Type: Spontaneous
  Country: US (occurrence: None)
  Receive Date: 20130325
  Receipt Date: 20130325
  Transmission Date: 20140127
  Serious: Yes (Hospitalization)
  Sender: FDA-Public Use
  Company Number: None

PATIENT
  Age: 59 Year
  Sex: Male

DRUGS (1)
  1. XELODA 500MG ROCHE PHARAMCEUTICALS [Suspect]
     Indication: COLON CANCER
     Dosage: 1500MG (3 TABLETS) TWICE A DAY BY MOUTH
     Route: 048
     Dates: start: 20130314

REACTIONS (4)
  - Somnolence [None]
  - Confusional state [None]
  - Chest pain [None]
  - Atrial fibrillation [None]
